FAERS Safety Report 7035618-3 (Version None)
Quarter: 2010Q4

REPORT INFORMATION
  Report Type: 
  Country: None (occurrence: None)
  Receive Date: 20101008
  Receipt Date: 20100927
  Transmission Date: 20110411
  Serious: Yes (Other)
  Sender: FDA-Public Use
  Company Number: IT-PFIZER INC-2010122692

PATIENT
  Age: 71 Year
  Sex: Male

DRUGS (2)
  1. VIAGRA [Suspect]
     Dosage: 100 MG, ONCE A WEEK
  2. CARDIOASPIRIN [Suspect]

REACTIONS (3)
  - BENIGN PROSTATIC HYPERPLASIA [None]
  - CHRONIC LYMPHOCYTIC LEUKAEMIA [None]
  - GASTRITIS [None]
